FAERS Safety Report 5077546-9 (Version None)
Quarter: 2006Q3

REPORT INFORMATION
  Report Type: 
  Country: None (occurrence: None)
  Receive Date: 20060810
  Receipt Date: 20060331
  Transmission Date: 20061208
  Serious: No
  Sender: FDA-Public Use
  Company Number: US-GLAXOSMITHKLINE-A0599941A

PATIENT
  Age: 44 Year
  Sex: Male

DRUGS (1)
  1. PAROXETINE HCL [Suspect]
     Dosage: 10MG TWICE PER DAY
     Route: 048
     Dates: start: 20060301, end: 20060301

REACTIONS (1)
  - ANXIETY [None]
